FAERS Safety Report 22660948 (Version 1)
Quarter: 2023Q2

REPORT INFORMATION
  Report Type: Spontaneous
  Country: FR (occurrence: FR)
  Receive Date: 20230630
  Receipt Date: 20230630
  Transmission Date: 20230722
  Serious: Yes (Hospitalization)
  Sender: FDA-Public Use
  Company Number: FR-AFSSAPS-RE2023000345

PATIENT
  Age: 75 Year
  Sex: Female
  Weight: 73 kg

DRUGS (8)
  1. PANTOPRAZOLE [Suspect]
     Active Substance: PANTOPRAZOLE
     Indication: Gastrooesophageal reflux disease
     Dosage: 20 MILLIGRAM, DAILY
     Route: 048
     Dates: start: 20230207, end: 20230329
  2. ATORVASTATIN [Suspect]
     Active Substance: ATORVASTATIN
     Indication: Myocardial infarction
     Dosage: 80 MILLIGRAM, DAILY
     Route: 048
     Dates: start: 20230207, end: 20230329
  3. RAMIPRIL [Suspect]
     Active Substance: RAMIPRIL
     Indication: Myocardial infarction
     Dosage: 2.5 MILLIGRAM, DAILY
     Route: 048
     Dates: start: 20230208, end: 20230329
  4. BISOPROLOL [Suspect]
     Active Substance: BISOPROLOL
     Indication: Cardiac failure
     Dosage: 7.5 MILLIGRAM, DAILY
     Route: 048
     Dates: start: 20230207
  5. TICAGRELOR [Suspect]
     Active Substance: TICAGRELOR
     Indication: Myocardial infarction
     Dosage: 180 MILLIGRAM, DAILY
     Route: 048
     Dates: start: 202302
  6. PROPYLTHIOURACIL [Suspect]
     Active Substance: PROPYLTHIOURACIL
     Indication: Hyperthyroidism
     Dosage: 200 MILLIGRAM, DAILY
     Route: 048
     Dates: start: 20230209, end: 20230329
  7. JARDIANCE [Suspect]
     Active Substance: EMPAGLIFLOZIN
     Indication: Cardiac failure
     Dosage: 10 MILLIGRAM, DAILY
     Route: 048
     Dates: start: 20230210, end: 20230327
  8. ASPIRIN [Suspect]
     Active Substance: ASPIRIN
     Indication: Myocardial infarction
     Dosage: 100 MILLIGRAM, DAILY
     Route: 048
     Dates: start: 20230209

REACTIONS (1)
  - Drug reaction with eosinophilia and systemic symptoms [Not Recovered/Not Resolved]

NARRATIVE: CASE EVENT DATE: 20230326
